FAERS Safety Report 10039263 (Version 1)
Quarter: 2014Q1

REPORT INFORMATION
  Report Type: Report from Study
  Country: US (occurrence: US)
  Receive Date: 20140326
  Receipt Date: 20140326
  Transmission Date: 20141002
  Serious: No
  Sender: FDA-Public Use
  Company Number: PHEH2014US005978

PATIENT
  Sex: Male

DRUGS (15)
  1. TASIGNA [Suspect]
     Indication: CHRONIC MYELOID LEUKAEMIA
     Dosage: 300 MG, BID
     Route: 048
     Dates: start: 20131206
  2. SYMBICORT [Concomitant]
  3. FISH OIL [Concomitant]
  4. ASPIRIN [Concomitant]
  5. COQ 10 [Concomitant]
  6. MULTIVITAMIN                       /00097801/ [Concomitant]
  7. MELATONIN [Concomitant]
  8. KONSYL [Concomitant]
  9. OMEPRAZOLE [Concomitant]
  10. ALLOPURINOL [Concomitant]
  11. MAGNESIUM OXIDE [Concomitant]
  12. CLINDAMYCIN [Concomitant]
  13. SIMVASTATIN [Concomitant]
  14. PREDNISONE [Concomitant]
  15. AZELASTINE [Concomitant]

REACTIONS (3)
  - Fatigue [Not Recovered/Not Resolved]
  - Nasopharyngitis [Not Recovered/Not Resolved]
  - Pain [Not Recovered/Not Resolved]
